FAERS Safety Report 11802439 (Version 1)
Quarter: 2015Q4

REPORT INFORMATION
  Report Type: Spontaneous
  Country: US (occurrence: US)
  Receive Date: 20151204
  Receipt Date: 20151204
  Transmission Date: 20160305
  Serious: No
  Sender: FDA-Public Use
  Company Number: US-PFIZER INC-2015401502

PATIENT
  Age: 67 Year
  Sex: Female

DRUGS (14)
  1. METOPROLOL TARTRATE. [Concomitant]
     Active Substance: METOPROLOL TARTRATE
     Dosage: 100 MG, 2X/DAY
  2. FEMARA [Concomitant]
     Active Substance: LETROZOLE
     Indication: BREAST CANCER
     Dosage: UNK
     Dates: start: 200902
  3. ASPIRIN (E.C.) [Concomitant]
     Active Substance: ASPIRIN
     Dosage: 81 MG, 1X/DAY
  4. COLCRYS [Concomitant]
     Active Substance: COLCHICINE
     Dosage: 0.6 MG, 1X/DAY
  5. AMLODIPINE BESILATE, BENAZEPRIL HYDROCHLORIDE [Concomitant]
     Active Substance: AMLODIPINE BESYLATE\BENAZEPRIL HYDROCHLORIDE
     Dosage: 1 DF, 1X/DAY (10 MG AMLODIPINE BESILATE, 40 MG BENAZEPRIL HYDROCHLORIDE)
  6. HYDROCHLOROTHIAZIDE. [Concomitant]
     Active Substance: HYDROCHLOROTHIAZIDE
     Dosage: 25 MG, 1X/DAY
  7. TIMOLOL MALEATE. [Concomitant]
     Active Substance: TIMOLOL MALEATE
     Dosage: 1 GTT, 1X/DAY (0.5 % SOLUTION 1 DROP)
  8. AROMASIN [Suspect]
     Active Substance: EXEMESTANE
     Indication: BREAST CANCER
     Dosage: 25 MG, 1X/DAY
     Route: 048
  9. SIMVASTATIN. [Concomitant]
     Active Substance: SIMVASTATIN
     Dosage: 20 MG, 1X/DAY (IN THE EVENING)
  10. CALTRATE 600 +D PLUS [Concomitant]
     Indication: BONE DISORDER
     Dosage: 1 DF, 2X/DAY (CALTRATE 600MG; D PLUS 800 MG )
  11. VITAMIN D [Concomitant]
     Active Substance: CHOLECALCIFEROL
     Dosage: 1000 IU, 1X/DAY
  12. AMLODIPINE BESYLATE. [Concomitant]
     Active Substance: AMLODIPINE BESYLATE
     Dosage: 10 MG, 1X/DAY
  13. BENAZEPRIL HCL [Concomitant]
     Active Substance: BENAZEPRIL HYDROCHLORIDE
     Dosage: 40 MG, 1X/DAY
  14. GLYBURIDE-METFORMIN HCL [Concomitant]
     Dosage: 1 DF, 2X/DAY (5 MG GLYBURIDE- 500 MG METFORMIN HCL)

REACTIONS (9)
  - Seborrhoeic keratosis [Unknown]
  - Fatigue [Unknown]
  - Night sweats [Unknown]
  - Hot flush [Unknown]
  - Paraesthesia [Recovering/Resolving]
  - Insomnia [Unknown]
  - Constipation [Unknown]
  - Cough [Unknown]
  - Dyspnoea [Unknown]
